FAERS Safety Report 23979404 (Version 4)
Quarter: 2025Q1

REPORT INFORMATION
  Report Type: Report from Study
  Country: BR (occurrence: BR)
  Receive Date: 20240615
  Receipt Date: 20250314
  Transmission Date: 20250409
  Serious: Yes (Other)
  Sender: AMGEN
  Company Number: BR-AMGEN-BRASL2024085028

PATIENT
  Age: 47 Year
  Sex: Female

DRUGS (25)
  1. VECTIBIX [Suspect]
     Active Substance: PANITUMUMAB
     Indication: Gastrointestinal cancer metastatic
     Dosage: UNK, Q2WK (14 DAYS)
     Route: 042
     Dates: start: 20240422
  2. VECTIBIX [Suspect]
     Active Substance: PANITUMUMAB
     Route: 042
     Dates: start: 20240513, end: 2024
  3. VECTIBIX [Suspect]
     Active Substance: PANITUMUMAB
     Route: 042
  4. MAGNESIUM GLYCINATE [Concomitant]
     Active Substance: MAGNESIUM GLYCINATE
     Route: 065
  5. MAGNESIUM ASPARTATE [Concomitant]
     Active Substance: MAGNESIUM ASPARTATE
  6. Magnesium taurate [Concomitant]
     Route: 065
  7. MAGNESIUM MALATE [Concomitant]
     Active Substance: MAGNESIUM MALATE
     Route: 065
  8. MELATONIN [Concomitant]
     Active Substance: MELATONIN
     Dosage: 3 MILLIGRAM, QD (1 TABLET 30 MINUTES BEFORE BED FOR 90 DAY)
     Route: 065
  9. SELENIUM [Concomitant]
     Active Substance: SELENIUM
     Dosage: 50 MICROGRAM, QD (1 TABLET 30 MINUTES BEFORE BED FOR 90)
  10. ZINC [Concomitant]
     Active Substance: ZINC
     Dosage: 20 MILLIGRAM, QD (1 TABLET 30 MINUTES BEFORE BED FOR 90)
  11. Melissa [Concomitant]
  12. P-coumaric acid [Concomitant]
  13. Vitexin [Concomitant]
  14. VALERIAN [Concomitant]
     Active Substance: VALERIAN
  15. Mulungu [Concomitant]
  16. DIETARY SUPPLEMENT [Concomitant]
     Active Substance: DIETARY SUPPLEMENT
  17. PYRIDOXAL PHOSPHATE ANHYDROUS [Concomitant]
     Active Substance: PYRIDOXAL PHOSPHATE ANHYDROUS
  18. LEUCOVORIN [Concomitant]
     Active Substance: LEUCOVORIN\LEUCOVORIN CALCIUM
  19. METHYLCOBALAMIN [Concomitant]
     Active Substance: METHYLCOBALAMIN
  20. INOSITOL NIACINATE [Concomitant]
     Active Substance: INOSITOL NIACINATE
     Route: 065
  21. GLYCINE [Concomitant]
     Active Substance: GLYCINE
  22. ACETYLCYSTEINE [Concomitant]
     Active Substance: ACETYLCYSTEINE
  23. SELENOMETHIONINE [Concomitant]
     Active Substance: SELENOMETHIONINE
  24. Kelp iodine ration [Concomitant]
  25. LACTULOSE [Concomitant]
     Active Substance: LACTULOSE
     Dosage: 667 MILLIGRAM PER MILLILITRE, QD (10 ML ONCE A DAY)
     Route: 065

REACTIONS (31)
  - Platelet count decreased [Recovering/Resolving]
  - Illness [Recovering/Resolving]
  - Screaming [Recovering/Resolving]
  - Decreased immune responsiveness [Recovering/Resolving]
  - Skin wound [Recovering/Resolving]
  - Skin haemorrhage [Recovering/Resolving]
  - Mouth ulceration [Recovering/Resolving]
  - Dysphagia [Recovering/Resolving]
  - Oropharyngeal pain [Recovering/Resolving]
  - Insomnia [Recovering/Resolving]
  - Scab [Recovering/Resolving]
  - Constipation [Recovering/Resolving]
  - Vomiting [Recovered/Resolved]
  - Alopecia [Not Recovered/Not Resolved]
  - Mucosal inflammation [Recovering/Resolving]
  - Abdominal pain [Recovering/Resolving]
  - Decreased appetite [Recovering/Resolving]
  - Fatigue [Recovering/Resolving]
  - Nausea [Recovering/Resolving]
  - Acne [Recovering/Resolving]
  - Pruritus [Recovering/Resolving]
  - Erythema [Recovering/Resolving]
  - Dry skin [Recovering/Resolving]
  - Skin fissures [Recovering/Resolving]
  - Dysgeusia [Recovering/Resolving]
  - Muscular weakness [Recovering/Resolving]
  - Cold shock response [Recovering/Resolving]
  - Swollen tongue [Unknown]
  - Dermatitis [Recovering/Resolving]
  - Hair growth abnormal [Recovering/Resolving]
  - Pain in extremity [Recovering/Resolving]

NARRATIVE: CASE EVENT DATE: 20240101
